FAERS Safety Report 23249327 (Version 2)
Quarter: 2023Q4

REPORT INFORMATION
  Report Type: Report from Study
  Country: US (occurrence: US)
  Receive Date: 20231201
  Receipt Date: 20231206
  Transmission Date: 20240110
  Serious: Yes (Death)
  Sender: FDA-Public Use
  Company Number: US-AMX-004696

PATIENT
  Age: 65 Year
  Sex: Female

DRUGS (1)
  1. RELYVRIO [Suspect]
     Active Substance: SODIUM PHENYLBUTYRATE\TAURURSODIOL
     Indication: Amyotrophic lateral sclerosis
     Dosage: 1 SACHET ONCE DAILY FOR FIRST 3 WEEKS, THEN ONE SACHET TWICE DAILY
     Route: 048
     Dates: start: 20230622, end: 20231116

REACTIONS (2)
  - Death [Fatal]
  - Salivary hypersecretion [Unknown]

NARRATIVE: CASE EVENT DATE: 20230624
